FAERS Safety Report 24467586 (Version 1)
Quarter: 2024Q4

REPORT INFORMATION
  Report Type: Spontaneous
  Country: FR (occurrence: FR)
  Receive Date: 20241018
  Receipt Date: 20241018
  Transmission Date: 20250115
  Serious: Yes (Hospitalization)
  Sender: ALEXION PHARMACEUTICALS
  Company Number: None

PATIENT
  Age: 13 Year
  Weight: 44.7 kg

DRUGS (15)
  1. DAPAGLIFLOZIN [Suspect]
     Active Substance: DAPAGLIFLOZIN
     Dosage: 10 MILLIGRAM, QD
  2. DAPAGLIFLOZIN [Suspect]
     Active Substance: DAPAGLIFLOZIN
     Dosage: 10 MILLIGRAM, QD
  3. DAPAGLIFLOZIN [Suspect]
     Active Substance: DAPAGLIFLOZIN
     Dosage: 10 MILLIGRAM, QD
  4. DAPAGLIFLOZIN [Suspect]
     Active Substance: DAPAGLIFLOZIN
     Dosage: 10 MILLIGRAM, QD
  5. XARELTO [Suspect]
     Active Substance: RIVAROXABAN
     Indication: Hypertrophic cardiomyopathy
  6. BISOPROLOL ACCORD HEALTHCARE 2,5 mg, comprim? pellicul? s?cable [Concomitant]
  7. BISOPROLOL ACCORD HEALTHCARE 2,5 mg, comprim? pellicul? s?cable [Concomitant]
     Route: 065
  8. SPIRONOLACTONE ACTAVIS 25 mg, comprim? pellicul? s?cable [Concomitant]
  9. SPIRONOLACTONE ACTAVIS 25 mg, comprim? pellicul? s?cable [Concomitant]
     Route: 065
  10. SERETIDE DISKUS 250/50 microgrammes/dose, poudre pour inhalation en r? [Concomitant]
  11. SERETIDE DISKUS 250/50 microgrammes/dose, poudre pour inhalation en r? [Concomitant]
     Route: 065
  12. CHOLECALCIFEROL [Concomitant]
     Active Substance: CHOLECALCIFEROL
  13. CHOLECALCIFEROL [Concomitant]
     Active Substance: CHOLECALCIFEROL
     Route: 065
  14. FUROSEMIDE [Concomitant]
     Active Substance: FUROSEMIDE
  15. FUROSEMIDE [Concomitant]
     Active Substance: FUROSEMIDE
     Route: 065

REACTIONS (5)
  - Vein disorder [Recovering/Resolving]
  - Erythema [Recovering/Resolving]
  - Oedema [Recovering/Resolving]
  - Haematoma [Recovering/Resolving]
  - Arthralgia [Recovering/Resolving]
